FAERS Safety Report 11842160 (Version 1)
Quarter: 2015Q4

REPORT INFORMATION
  Report Type: Spontaneous
  Country: US (occurrence: US)
  Receive Date: 20151216
  Receipt Date: 20151216
  Transmission Date: 20160305
  Serious: No
  Sender: FDA-Public Use
  Company Number: US-RB-073672-15

PATIENT
  Sex: Female

DRUGS (1)
  1. DELSYM [Suspect]
     Active Substance: DEXTROMETHORPHAN
     Indication: PAIN MANAGEMENT
     Dosage: 5ML. PATIENT TOOK 1 TABLESPOON EVERY 6-7 HOURS AND LAST USED THE DRUG ON 16-FEB-2015,FREQUENCY UNK
     Route: 065

REACTIONS (5)
  - Overdose [Unknown]
  - Product use issue [Unknown]
  - Incorrect drug administration duration [Unknown]
  - Product physical consistency issue [Unknown]
  - No adverse event [Unknown]
